FAERS Safety Report 6478385-4 (Version None)
Quarter: 2009Q4

REPORT INFORMATION
  Report Type: 
  Country: None (occurrence: None)
  Receive Date: 20091207
  Receipt Date: 20091123
  Transmission Date: 20100525
  Serious: Yes (Other)
  Sender: FDA-Public Use
  Company Number: PHHY2009MX44040

PATIENT
  Age: 73 Year
  Sex: Female

DRUGS (4)
  1. DIOVAN HCT [Suspect]
     Indication: HYPERTENSION
     Dosage: 1 TABLET (160/25 MG) DAILY
     Route: 048
     Dates: start: 20010901, end: 20090301
  2. DOLO-NEUROBION [Concomitant]
     Route: 065
  3. ELOMET [Concomitant]
     Route: 065
  4. OZONE [Concomitant]
     Route: 065

REACTIONS (5)
  - GASTRIC ULCER [None]
  - HYPERTRIGLYCERIDAEMIA [None]
  - NEPHROLITHIASIS [None]
  - RENAL DISORDER [None]
  - RENAL FAILURE [None]
